FAERS Safety Report 11913450 (Version 1)
Quarter: 2016Q1

REPORT INFORMATION
  Report Type: Spontaneous
  Country: BR (occurrence: BR)
  Receive Date: 20160113
  Receipt Date: 20160113
  Transmission Date: 20160526
  Serious: Yes (Other)
  Sender: FDA-Public Use
  Company Number: BR-PFIZER INC-2016012458

PATIENT
  Age: 71 Year
  Sex: Female

DRUGS (2)
  1. ATLANSIL//AMIODARONE [Suspect]
     Active Substance: AMIODARONE
     Indication: ARRHYTHMIA
     Dosage: UNK
     Route: 065
     Dates: start: 201504, end: 201509
  2. BRILINTA [Concomitant]
     Active Substance: TICAGRELOR
     Dosage: UNK
     Dates: end: 201504

REACTIONS (4)
  - Weight decreased [Unknown]
  - Thyroid disorder [Unknown]
  - Benign neoplasm of thyroid gland [Unknown]
  - Coronary artery occlusion [Unknown]

NARRATIVE: CASE EVENT DATE: 201509
